FAERS Safety Report 18365295 (Version 3)
Quarter: 2021Q2

REPORT INFORMATION
  Report Type: Spontaneous
  Country: US (occurrence: US)
  Receive Date: 20201009
  Receipt Date: 20210426
  Transmission Date: 20210717
  Serious: Yes (Hospitalization, Other)
  Sender: FDA-Public Use
  Company Number: US-SA-2020SA277934

PATIENT
  Age: 36 Year
  Sex: Female

DRUGS (12)
  1. DUPIXENT [Suspect]
     Active Substance: DUPILUMAB
     Indication: ASTHMA
     Dosage: 300 MG, QOW
     Route: 058
     Dates: start: 20210127
  2. HIZENTRA [Suspect]
     Active Substance: HUMAN IMMUNOGLOBULIN G
     Dosage: UNK
  3. NEXIUM [Concomitant]
     Active Substance: ESOMEPRAZOLE MAGNESIUM
     Dosage: UNK
  4. DUPIXENT [Suspect]
     Active Substance: DUPILUMAB
     Indication: ILLNESS
     Dosage: 300 MG, QOW
     Route: 058
  5. IBUPROFEN. [Concomitant]
     Active Substance: IBUPROFEN
     Dosage: UNK
  6. PEPCID [Concomitant]
     Active Substance: FAMOTIDINE
     Dosage: UNK
  7. WELLBUTRIN [Concomitant]
     Active Substance: BUPROPION HYDROCHLORIDE
     Dosage: UNK
  8. CETIRIZINE [Concomitant]
     Active Substance: CETIRIZINE HYDROCHLORIDE
     Dosage: UNK
  9. DUPIXENT [Suspect]
     Active Substance: DUPILUMAB
     Indication: HYPOGAMMAGLOBULINAEMIA
     Dosage: UNK
     Route: 058
     Dates: start: 202101
  10. DICLOFENAC [Concomitant]
     Active Substance: DICLOFENAC
     Dosage: UNK
  11. SIMETHICONE (DIMETHICONE) [Concomitant]
     Active Substance: DIMETHICONE
     Dosage: UNK
  12. CORTEF [Concomitant]
     Active Substance: HYDROCORTISONE
     Dosage: UNK

REACTIONS (18)
  - Seizure [Unknown]
  - Dyskinesia [Unknown]
  - Sensory disturbance [Unknown]
  - Condition aggravated [Unknown]
  - Stress [Unknown]
  - Product use in unapproved indication [Unknown]
  - Loss of consciousness [Unknown]
  - Dyspnoea [Unknown]
  - Flushing [Unknown]
  - Consciousness fluctuating [Unknown]
  - Head titubation [Unknown]
  - Chest pain [Unknown]
  - General physical health deterioration [Unknown]
  - Hypersensitivity [Unknown]
  - Presyncope [Unknown]
  - Tachycardia [Unknown]
  - Urticaria [Unknown]
  - Pain in extremity [Unknown]

NARRATIVE: CASE EVENT DATE: 20200828
